FAERS Safety Report 17198358 (Version 2)
Quarter: 2019Q4

REPORT INFORMATION
  Report Type: Other
  Country: None (occurrence: CN)
  Receive Date: 20191225
  Receipt Date: 20191225
  Transmission Date: 20200122
  Serious: Yes (Life-Threatening)
  Sender: FDA-Public Use
  Company Number: CN-JIANGSU HENGRUI MEDICINE CO., LTD.-2078177

PATIENT
  Age: 37 Year
  Sex: Female
  Weight: 55 kg

DRUGS (3)
  1. PROPOFOL MEDIUM AND LONG CHAIN FAT EMULSION INJECTION.?BEIJING FRESENI [Suspect]
     Active Substance: PROPOFOL
     Route: 041
     Dates: start: 20191216, end: 20191216
  2. SUFENTANIL CITRATE INJECTION [Concomitant]
     Active Substance: SUFENTANIL CITRATE
     Route: 041
     Dates: start: 20191216, end: 20191216
  3. CISATRACURIUM BESYLATE INJECTION USP, 10 MG/5 ML (2 MG/ML) AND 200 MG/ [Suspect]
     Active Substance: CISATRACURIUM BESYLATE
     Indication: INDUCTION OF ANAESTHESIA
     Route: 041
     Dates: start: 20191216, end: 20191216

REACTIONS (1)
  - Anaphylactic shock [Recovered/Resolved]

NARRATIVE: CASE EVENT DATE: 20191216
